FAERS Safety Report 10216871 (Version 1)
Quarter: 2014Q2

REPORT INFORMATION
  Report Type: Spontaneous
  Country: IT (occurrence: IT)
  Receive Date: 20140604
  Receipt Date: 20140604
  Transmission Date: 20141212
  Serious: Yes (Other)
  Sender: FDA-Public Use
  Company Number: IT-ELI_LILLY_AND_COMPANY-IT201405009758

PATIENT
  Age: 72 Year
  Sex: Female

DRUGS (1)
  1. FORSTEO [Suspect]
     Indication: PRODUCT USED FOR UNKNOWN INDICATION
     Dosage: UNK, UNKNOWN
     Route: 065
     Dates: start: 20140524

REACTIONS (7)
  - Tracheal inflammation [Unknown]
  - Eye irritation [Unknown]
  - Chest discomfort [Unknown]
  - Injection site reaction [Unknown]
  - Burning sensation [Unknown]
  - Dyspnoea [Unknown]
  - Chest pain [Unknown]
